FAERS Safety Report 8616358-3 (Version None)
Quarter: 2012Q3

REPORT INFORMATION
  Report Type: 
  Country: None (occurrence: None)
  Receive Date: 20120823
  Receipt Date: 20120821
  Transmission Date: 20120928
  Serious: Yes (Other)
  Sender: FDA-Public Use
  Company Number: NZ-BAYER-2012-087004

PATIENT
  Age: 46 Year
  Sex: Female

DRUGS (7)
  1. NAPROXEN SODIUM [Suspect]
  2. ESTRADIOL [Suspect]
  3. LEVOTHYROXINE SODIUM [Suspect]
  4. NORTRIPTYLINE HCL [Suspect]
  5. ASTHMA MEDICATIONS [Suspect]
  6. OMEPRAZOLE [Suspect]
  7. VARENICLINE [Suspect]
     Dosage: AT DAY 10

REACTIONS (2)
  - HAEMOPTYSIS [None]
  - DYSPHONIA [None]
